FAERS Safety Report 22018328 (Version 2)
Quarter: 2023Q1

REPORT INFORMATION
  Report Type: Spontaneous
  Country: ES (occurrence: None)
  Receive Date: 20230221
  Receipt Date: 20230307
  Transmission Date: 20230417
  Serious: Yes (Other)
  Sender: FDA-Public Use
  Company Number: ES-VistaPharm, Inc.-VER202302-000117

PATIENT
  Age: 52 Year
  Sex: Male

DRUGS (2)
  1. OXYCODONE [Suspect]
     Active Substance: OXYCODONE
     Indication: Osteoarthritis
     Dosage: 30 MG
     Route: 065
  2. OXYCODONE [Suspect]
     Active Substance: OXYCODONE
     Dosage: 60 MG (INCREASED)
     Route: 065

REACTIONS (2)
  - Drug-induced liver injury [Recovering/Resolving]
  - Non-alcoholic fatty liver [Not Recovered/Not Resolved]
